FAERS Safety Report 19004683 (Version 1)
Quarter: 2021Q1

REPORT INFORMATION
  Report Type: Spontaneous
  Country: US (occurrence: US)
  Receive Date: 20210312
  Receipt Date: 20210312
  Transmission Date: 20210420
  Serious: Yes (Hospitalization, Disabling, Other)
  Sender: FDA-Public Use
  Company Number: US-ELI_LILLY_AND_COMPANY-US202103002436

PATIENT
  Age: 65 Year
  Sex: Male

DRUGS (3)
  1. JARDIANCE [Concomitant]
     Active Substance: EMPAGLIFLOZIN
     Indication: TYPE 2 DIABETES MELLITUS
     Dosage: 1 DOSAGE FORM, DAILY
  2. HUMALOG MIX75/25 [Suspect]
     Active Substance: INSULIN LISPRO
     Indication: TYPE 2 DIABETES MELLITUS
     Dosage: UNK UNK, UNKNOWN
     Route: 058
  3. HUMALOG MIX75/25 [Suspect]
     Active Substance: INSULIN LISPRO
     Dosage: 60?85 U, DAILY (SLIDING SCALE)
     Route: 058

REACTIONS (14)
  - Thrombosis [Recovered/Resolved]
  - Rotator cuff syndrome [Recovered/Resolved]
  - Sinusitis [Not Recovered/Not Resolved]
  - Nasal congestion [Unknown]
  - Limb injury [Recovering/Resolving]
  - Localised infection [Recovered/Resolved]
  - Dry skin [Not Recovered/Not Resolved]
  - Pulmonary embolism [Recovered/Resolved]
  - Embolism [Recovered/Resolved]
  - Fine motor skill dysfunction [Not Recovered/Not Resolved]
  - Accident at work [Recovering/Resolving]
  - Carpal tunnel syndrome [Recovered/Resolved]
  - Fall [Recovering/Resolving]
  - Gait disturbance [Recovering/Resolving]

NARRATIVE: CASE EVENT DATE: 20201130
